FAERS Safety Report 6126673-3 (Version None)
Quarter: 2009Q1

REPORT INFORMATION
  Report Type: 
  Country: None (occurrence: None)
  Receive Date: 20090320
  Receipt Date: 20090311
  Transmission Date: 20090719
  Serious: Yes (Other)
  Sender: FDA-Public Use
  Company Number: JP-PFIZER INC-2009180858

PATIENT

DRUGS (2)
  1. NORVASC [Suspect]
     Indication: HYPERTENSION
     Dosage: 5 MG, 1X/DAY
     Route: 048
     Dates: start: 20080216
  2. NORVASC [Suspect]
     Dosage: 5 MG, 2X/DAY
     Dates: end: 20090307

REACTIONS (2)
  - CELLULITIS [None]
  - VASCULITIS [None]
